FAERS Safety Report 9820022 (Version 1)
Quarter: 2013Q3

REPORT INFORMATION
  Report Type: Spontaneous
  Country: US (occurrence: None)
  Receive Date: 20130924
  Receipt Date: 20130924
  Transmission Date: 20140515
  Serious: No
  Sender: FDA-Public Use
  Company Number: 2013000208

PATIENT
  Sex: Female

DRUGS (1)
  1. OSPHENA (OSPEMIFENE) TABLET [Suspect]
     Indication: PRODUCT USED FOR UNKNOWN INDICATION
     Dates: start: 201306

REACTIONS (1)
  - Hot flush [None]
